FAERS Safety Report 10776925 (Version 2)
Quarter: 2015Q1

REPORT INFORMATION
  Report Type: Report from Study
  Country: US (occurrence: US)
  Receive Date: 20150209
  Receipt Date: 20150312
  Transmission Date: 20150721
  Serious: Yes (Death, Hospitalization)
  Sender: FDA-Public Use
  Company Number: PHEH2015US002239

PATIENT
  Sex: Male
  Weight: 60.32 kg

DRUGS (1)
  1. ZYKADIA [Suspect]
     Active Substance: CERITINIB
     Indication: LUNG NEOPLASM MALIGNANT
     Dosage: 150 MG, TID
     Route: 048
     Dates: start: 20140730

REACTIONS (3)
  - Hip fracture [Unknown]
  - Death [Fatal]
  - Pulmonary embolism [Unknown]
